FAERS Safety Report 18893622 (Version 1)
Quarter: 2021Q1

REPORT INFORMATION
  Report Type: Report from Study
  Country: US (occurrence: US)
  Receive Date: 20210215
  Receipt Date: 20210215
  Transmission Date: 20210420
  Serious: Yes (Hospitalization, Other)
  Sender: FDA-Public Use
  Company Number: US-TAKEDA-US202001816

PATIENT
  Age: 54 Year
  Sex: Female

DRUGS (1)
  1. HUMAN NORMAL IMMUNOGLOBULIN; LIQUID [Suspect]
     Active Substance: HUMAN IMMUNOGLOBULIN G
     Indication: PRIMARY IMMUNODEFICIENCY SYNDROME
     Dosage: 40 GRAM, 1X A MONTH
     Route: 042

REACTIONS (10)
  - Hangover [Unknown]
  - Headache [Unknown]
  - Nausea [Unknown]
  - Incorrect drug administration rate [Unknown]
  - Pneumonia [Unknown]
  - Bronchitis [Unknown]
  - Suspected COVID-19 [Unknown]
  - Infection [Unknown]
  - Asthma [Unknown]
  - Sinusitis [Unknown]

NARRATIVE: CASE EVENT DATE: 20200110
